FAERS Safety Report 7587590-5 (Version None)
Quarter: 2011Q3

REPORT INFORMATION
  Report Type: 
  Country: None (occurrence: None)
  Receive Date: 20110704
  Receipt Date: 20110620
  Transmission Date: 20111222
  Serious: Yes (Other)
  Sender: FDA-Public Use
  Company Number: PHFR2011GB03765

PATIENT

DRUGS (2)
  1. GLEEVEC [Suspect]
     Indication: CHRONIC MYELOID LEUKAEMIA
     Dosage: UNK
     Route: 065
  2. MELPHALAN HYDROCHLORIDE [Concomitant]
     Dosage: UNK
     Route: 065

REACTIONS (2)
  - NEOPLASM MALIGNANT [None]
  - MULTIPLE MYELOMA [None]
